FAERS Safety Report 5036395-8 (Version None)
Quarter: 2006Q2

REPORT INFORMATION
  Report Type: 
  Country: None (occurrence: None)
  Receive Date: 20060601
  Receipt Date: 20060417
  Transmission Date: 20061013
  Serious: No
  Sender: FDA-Public Use
  Company Number: US200604002663

PATIENT
  Age: 55 Year
  Sex: Female

DRUGS (5)
  1. CYMBALTA [Suspect]
     Indication: DEPRESSION
     Dosage: 30 MG, DAILY (1/D)
     Dates: start: 20060401
  2. ZOLOFT [Concomitant]
  3. LITHIUM (LITHIUM) [Concomitant]
  4. COUMADIN [Concomitant]
  5. KLONOPIN [Concomitant]

REACTIONS (1)
  - AGEUSIA [None]
